FAERS Safety Report 12873561 (Version 1)
Quarter: 2016Q4

REPORT INFORMATION
  Report Type: Spontaneous
  Country: US (occurrence: US)
  Receive Date: 20161021
  Receipt Date: 20161021
  Transmission Date: 20170207
  Serious: No
  Sender: FDA-Public Use
  Company Number: US-BAYER-2016-186562

PATIENT
  Sex: Female

DRUGS (1)
  1. ALEVE [Suspect]
     Active Substance: NAPROXEN SODIUM
     Indication: PAIN
     Dosage: UNK UNK, ONCE
     Route: 048
     Dates: start: 20160923

REACTIONS (3)
  - Arthralgia [Not Recovered/Not Resolved]
  - Circumstance or information capable of leading to medication error [None]
  - Drug ineffective [None]

NARRATIVE: CASE EVENT DATE: 20160923
